FAERS Safety Report 8071444 (Version 3)
Quarter: 2013Q2

REPORT INFORMATION
  Report Type: Spontaneous
  Country: GB (occurrence: GB)
  Receive Date: 20110805
  Receipt Date: 20130419
  Transmission Date: 20140414
  Serious: Yes (Death)
  Sender: FDA-Public Use
  Company Number: GB-CELGENEUS-167-21880-11080344

PATIENT
  Sex: Male
  Weight: 91 kg

DRUGS (2)
  1. REVLIMID [Suspect]
     Indication: T-CELL CHRONIC LYMPHOCYTIC LEUKAEMIA
     Dosage: 15 MILLIGRAM
     Route: 048
     Dates: start: 20110722, end: 20110726
  2. ANTITHROMBOTIC AGENTS [Concomitant]
     Indication: PRODUCT USED FOR UNKNOWN INDICATION
     Route: 065

REACTIONS (1)
  - T-cell chronic lymphocytic leukaemia [Fatal]
